FAERS Safety Report 5804662-3 (Version None)
Quarter: 2008Q3

REPORT INFORMATION
  Report Type: 
  Country: None (occurrence: None)
  Receive Date: 20080709
  Receipt Date: 20080703
  Transmission Date: 20090109
  Serious: Yes (Life-Threatening)
  Sender: FDA-Public Use
  Company Number: AU-ROCHE-573885

PATIENT
  Sex: Female
  Weight: 98 kg

DRUGS (10)
  1. CELLCEPT [Suspect]
     Route: 065
     Dates: start: 20071129
  2. ARANESP [Suspect]
     Dosage: FREQUENCY: WEEKLY.
     Route: 065
     Dates: start: 20071010, end: 20071122
  3. CYCLOPHOSPHAMIDE [Suspect]
     Route: 065
     Dates: start: 20070920, end: 20071129
  4. MINULET [Suspect]
     Indication: CONTRACEPTION
     Dosage: DOSAGE REGIMEN REPORTED AS ONE DOSE UNSPECIFIED DAILY.
     Route: 048
     Dates: start: 20070920, end: 20071130
  5. CALCITRIOL [Concomitant]
     Dosage: ONE DOSE UNSPECIFIED DAILY.
     Dates: start: 20070920
  6. DOXYCYCLINE HCL [Concomitant]
     Dosage: DRUG REPORTED AS DOXYCYCLINE HYDROCHLORIDE.
     Dates: start: 20071122, end: 20071130
  7. IRBESARTAN [Concomitant]
     Dates: start: 20070920
  8. PREDNISOLONE [Concomitant]
     Dates: start: 20070920
  9. RANITIDINE HCL [Concomitant]
     Dates: start: 20070920
  10. RESPRIM [Concomitant]
     Dosage: ONE DOSE UNSPECIFIED.
     Dates: start: 20070920

REACTIONS (4)
  - CEREBRAL VENOUS THROMBOSIS [None]
  - HEADACHE [None]
  - PARTIAL SEIZURES [None]
  - VOMITING [None]
